FAERS Safety Report 21154847 (Version 1)
Quarter: 2022Q3

REPORT INFORMATION
  Report Type: Spontaneous
  Country: US (occurrence: None)
  Receive Date: 20220730
  Receipt Date: 20220730
  Transmission Date: 20221027
  Serious: No
  Sender: FDA-Public Use
  Company Number: None

PATIENT
  Age: 71 Year
  Sex: Male
  Weight: 111.15 kg

DRUGS (6)
  1. FLUCONAZOLE [Suspect]
     Active Substance: FLUCONAZOLE
     Indication: Tinea cruris
     Dosage: OTHER QUANTITY : 1 TABLET(S);?OTHER FREQUENCY : 1, 0, OR 1/2 PR WK;?
     Route: 048
     Dates: start: 20220629, end: 20220723
  2. amoxicillin K Clav.  Was not using this during use of the fluconazole. [Concomitant]
  3. EXCEDRIN EXTRA STRENGTH [Concomitant]
     Active Substance: ACETAMINOPHEN\ASPIRIN\CAFFEINE
  4. VITAMIN D [Concomitant]
     Active Substance: VITAMIN D NOS
  5. Goodbelly Probiotics [Concomitant]
  6. Phillips Colon Health Probiotics [Concomitant]

REACTIONS (2)
  - Lethargy [None]
  - Blood pressure increased [None]

NARRATIVE: CASE EVENT DATE: 20220725
